FAERS Safety Report 13542562 (Version 1)
Quarter: 2017Q2

REPORT INFORMATION
  Report Type: Spontaneous
  Country: US (occurrence: US)
  Receive Date: 20170512
  Receipt Date: 20170512
  Transmission Date: 20170830
  Serious: Yes (Hospitalization)
  Sender: FDA-Public Use
  Company Number: US-ROCHE-717159

PATIENT
  Age: 65 Year
  Sex: Male
  Weight: 78.9 kg

DRUGS (5)
  1. AVASTIN [Suspect]
     Active Substance: BEVACIZUMAB
     Route: 042
  2. 5-FU [Concomitant]
     Active Substance: FLUOROURACIL
     Dosage: 800 MG (IVP)/4600 MG (PUMP)
     Route: 065
  3. FOLINIC ACID [Concomitant]
     Active Substance: LEUCOVORIN
     Route: 065
  4. AVASTIN [Suspect]
     Active Substance: BEVACIZUMAB
     Indication: COLON CANCER
     Dosage: TREATMENT DELAYED.
     Route: 042
  5. CAMPTOSAR [Concomitant]
     Active Substance: IRINOTECAN HYDROCHLORIDE
     Route: 065

REACTIONS (1)
  - Epididymitis [Not Recovered/Not Resolved]

NARRATIVE: CASE EVENT DATE: 20100720
